FAERS Safety Report 18361137 (Version 2)
Quarter: 2020Q4

REPORT INFORMATION
  Report Type: Spontaneous
  Country: US (occurrence: US)
  Receive Date: 20201008
  Receipt Date: 20201102
  Transmission Date: 20210114
  Serious: No
  Sender: FDA-Public Use
  Company Number: US-ASTRAZENECA-2020SF28334

PATIENT
  Sex: Female

DRUGS (3)
  1. NOVOLOG PEN [Concomitant]
     Indication: DIABETES MELLITUS
     Route: 065
  2. TRIESIBA PEN [Concomitant]
     Indication: DIABETES MELLITUS
     Route: 065
  3. BYDUREON [Suspect]
     Active Substance: EXENATIDE
     Route: 065

REACTIONS (4)
  - Injection site pain [Unknown]
  - Product use issue [Unknown]
  - Device issue [Unknown]
  - Neuropathy peripheral [Unknown]
